FAERS Safety Report 7621564-0 (Version None)
Quarter: 2011Q3

REPORT INFORMATION
  Report Type: 
  Country: None (occurrence: None)
  Receive Date: 20110719
  Receipt Date: 20110714
  Transmission Date: 20111222
  Serious: Yes (Death)
  Sender: FDA-Public Use
  Company Number: US-CELGENEUS-163-21880-11052544

PATIENT
  Sex: Male

DRUGS (5)
  1. BACTRIM DS [Concomitant]
     Indication: INFECTION
     Dosage: 1
     Route: 065
     Dates: start: 20100601, end: 20110301
  2. NEURONTIN [Concomitant]
     Dosage: 6
     Route: 065
     Dates: start: 20110101
  3. REVLIMID [Suspect]
     Indication: NON-HODGKIN'S LYMPHOMA
  4. ACYCLOVIR [Concomitant]
     Indication: INFECTION
     Dosage: 3
     Route: 065
     Dates: start: 20100601, end: 20110301
  5. REVLIMID [Suspect]
     Indication: MYELODYSPLASTIC SYNDROME
     Dosage: 10 MILLIGRAM
     Route: 048
     Dates: start: 20110412, end: 20110510

REACTIONS (1)
  - NON-HODGKIN'S LYMPHOMA [None]
